FAERS Safety Report 6963747-9 (Version None)
Quarter: 2010Q3

REPORT INFORMATION
  Report Type: 
  Country: None (occurrence: None)
  Receive Date: 20100902
  Receipt Date: 20100824
  Transmission Date: 20110219
  Serious: Yes (Other)
  Sender: FDA-Public Use
  Company Number: US-BAXTER-2010BH022168

PATIENT
  Sex: Female

DRUGS (2)
  1. REGLAN [Suspect]
     Indication: PRODUCT USED FOR UNKNOWN INDICATION
     Route: 042
     Dates: start: 20010101, end: 20081201
  2. REGLAN [Suspect]
     Route: 048
     Dates: start: 20010101, end: 20081201

REACTIONS (2)
  - DYSPHAGIA [None]
  - PSEUDOBULBAR PALSY [None]
